FAERS Safety Report 6070347-4 (Version None)
Quarter: 2009Q1

REPORT INFORMATION
  Report Type: 
  Country: None (occurrence: None)
  Receive Date: 20090209
  Receipt Date: 20090204
  Transmission Date: 20090719
  Serious: Yes (Other)
  Sender: FDA-Public Use
  Company Number: FR-BRISTOL-MYERS SQUIBB COMPANY-14488902

PATIENT
  Age: 62 Year
  Sex: Male

DRUGS (2)
  1. REYATAZ [Suspect]
  2. ABACAVIR SULFATE/LAMIVUDINE [Concomitant]

REACTIONS (3)
  - ANAEMIA [None]
  - BLOOD BILIRUBIN INCREASED [None]
  - THROMBOTIC THROMBOCYTOPENIC PURPURA [None]
